FAERS Safety Report 18320066 (Version 1)
Quarter: 2020Q3

REPORT INFORMATION
  Report Type: Other
  Country: US (occurrence: US)
  Receive Date: 20200928
  Receipt Date: 20200928
  Transmission Date: 20201103
  Serious: Yes (Other)
  Sender: FDA-Public Use
  Company Number: US-ROCHE-2682656

PATIENT
  Age: 59 Year
  Sex: Female
  Weight: 72.64 kg

DRUGS (2)
  1. OCREVUS [Suspect]
     Active Substance: OCRELIZUMAB
     Indication: RELAPSING-REMITTING MULTIPLE SCLEROSIS
     Route: 042
     Dates: start: 20190315
  2. OCREVUS [Suspect]
     Active Substance: OCRELIZUMAB
     Dosage: DAY 1 AND DAY 15?MOST RECENT DOSES GIVEN ON 29/MAR/2019, 30/SEP/2019, 31/MAR/2020.
     Route: 042

REACTIONS (5)
  - Lower limb fracture [Recovered/Resolved]
  - Fibula fracture [Unknown]
  - Localised infection [Not Recovered/Not Resolved]
  - Wound dehiscence [Unknown]
  - Tibia fracture [Unknown]

NARRATIVE: CASE EVENT DATE: 201912
